FAERS Safety Report 15622038 (Version 1)
Quarter: 2018Q4

REPORT INFORMATION
  Report Type: Spontaneous
  Country: FR (occurrence: FR)
  Receive Date: 20181115
  Receipt Date: 20181115
  Transmission Date: 20190205
  Serious: Yes (Other)
  Sender: FDA-Public Use
  Company Number: FR-PFIZER INC-2018462735

PATIENT
  Age: 44 Year
  Sex: Male

DRUGS (4)
  1. LYSANXIA [Suspect]
     Active Substance: PRAZEPAM
     Dosage: 10 MG, UNK
     Route: 065
  2. XANAX [Suspect]
     Active Substance: ALPRAZOLAM
     Dosage: 0.25 MG, UNK
     Route: 065
  3. SEROPLEX [Suspect]
     Active Substance: ESCITALOPRAM OXALATE
     Dosage: 20 MG, UNK
     Route: 065
  4. SERESTA [Suspect]
     Active Substance: OXAZEPAM
     Dosage: 50 MG, UNK
     Route: 065

REACTIONS (3)
  - Prescription form tampering [Not Recovered/Not Resolved]
  - Drug abuse [Not Recovered/Not Resolved]
  - Drug dependence [Not Recovered/Not Resolved]
